FAERS Safety Report 9199567 (Version 1)
Quarter: 2013Q1

REPORT INFORMATION
  Report Type: Spontaneous
  Country: US (occurrence: US)
  Receive Date: 20130329
  Receipt Date: 20130329
  Transmission Date: 20140127
  Serious: No
  Sender: FDA-Public Use
  Company Number: US-GLAXOSMITHKLINE-A1006912A

PATIENT
  Age: 36 Year
  Sex: Female
  Weight: 97.7 kg

DRUGS (7)
  1. BENLYSTA [Suspect]
     Indication: SYSTEMIC LUPUS ERYTHEMATOSUS
     Dates: start: 201209
  2. PREDNISONE [Concomitant]
  3. PLAQUENIL [Concomitant]
  4. EFFEXOR [Concomitant]
  5. RELAFEN [Concomitant]
  6. IMITREX [Concomitant]
  7. LATUDA [Concomitant]

REACTIONS (1)
  - Rash pruritic [Recovered/Resolved]
